FAERS Safety Report 11250430 (Version 1)
Quarter: 2015Q3

REPORT INFORMATION
  Report Type: Spontaneous
  Country: US (occurrence: US)
  Receive Date: 20150708
  Receipt Date: 20150708
  Transmission Date: 20151125
  Serious: Yes (Death)
  Sender: FDA-Public Use
  Company Number: US-ELI_LILLY_AND_COMPANY-US200807005822

PATIENT
  Age: 22 Year
  Sex: Female

DRUGS (1)
  1. XIGRIS [Suspect]
     Active Substance: DROTRECOGIN ALFA (ACTIVATED)
     Indication: MENINGITIS BACTERIAL
     Dosage: 89 MG/KG, DAILY (1/D); 30 MINUTE INFUSION
     Route: 042

REACTIONS (3)
  - Accidental overdose [Unknown]
  - Medication error [Unknown]
  - Meningitis bacterial [Fatal]
